FAERS Safety Report 20021180 (Version 1)
Quarter: 2021Q4

REPORT INFORMATION
  Report Type: Spontaneous
  Country: US (occurrence: US)
  Receive Date: 20211101
  Receipt Date: 20211101
  Transmission Date: 20220303
  Serious: Yes (Hospitalization)
  Sender: FDA-Public Use
  Company Number: US-NOVARTISPH-NVSC2021US246974

PATIENT
  Age: 46 Year
  Sex: Male

DRUGS (4)
  1. RANITIDINE [Suspect]
     Active Substance: RANITIDINE
     Indication: Food allergy
     Dosage: 150 MG, QD
     Route: 048
     Dates: start: 200701, end: 201911
  2. RANITIDINE [Suspect]
     Active Substance: RANITIDINE
     Indication: Dermatitis contact
  3. RANITIDINE [Suspect]
     Active Substance: RANITIDINE
     Indication: Food allergy
     Dosage: 150 MG, QD
     Route: 048
     Dates: start: 200701, end: 201911
  4. RANITIDINE [Suspect]
     Active Substance: RANITIDINE
     Indication: Dermatitis contact

REACTIONS (2)
  - Colorectal cancer [Unknown]
  - Product use in unapproved indication [Unknown]

NARRATIVE: CASE EVENT DATE: 20200409
